FAERS Safety Report 10973286 (Version 1)
Quarter: 2015Q2

REPORT INFORMATION
  Report Type: Spontaneous
  Country: FI (occurrence: FI)
  Receive Date: 20150401
  Receipt Date: 20150401
  Transmission Date: 20150821
  Serious: Yes (Disabling)
  Sender: FDA-Public Use
  Company Number: FI-ROCHE-1558393

PATIENT
  Age: 63 Year
  Sex: Male

DRUGS (10)
  1. METFOREM [Concomitant]
     Active Substance: METFORMIN HYDROCHLORIDE
     Route: 048
     Dates: start: 20130918, end: 20150324
  2. SIMVASTATIN. [Concomitant]
     Active Substance: SIMVASTATIN
     Route: 048
     Dates: start: 20150310
  3. BISOPROLOL [Concomitant]
     Active Substance: BISOPROLOL
     Route: 048
     Dates: start: 20140129
  4. ZINACEF [Concomitant]
     Active Substance: CEFUROXIME SODIUM
     Route: 042
     Dates: start: 20150324
  5. NEXIUM [Concomitant]
     Active Substance: ESOMEPRAZOLE MAGNESIUM
     Route: 048
     Dates: start: 20140214
  6. MAREVAN FORTE [Concomitant]
     Active Substance: WARFARIN SODIUM
     Route: 048
     Dates: start: 20110822
  7. ENALAPRIL COMP [Concomitant]
     Active Substance: ENALAPRIL MALEATE\HYDROCHLOROTHIAZIDE
     Dosage: 20 MG/12.5 MG
     Route: 048
     Dates: start: 20130911
  8. PREDNISOLON [Concomitant]
     Active Substance: PREDNISOLONE
     Route: 048
     Dates: start: 20141112
  9. TAMIFLU [Suspect]
     Active Substance: OSELTAMIVIR PHOSPHATE
     Indication: INFLUENZA
     Route: 048
     Dates: start: 20150324, end: 20150325
  10. CALCICHEW D3 FORTE [Concomitant]
     Active Substance: CALCIUM\CHOLECALCIFEROL
     Dosage: 500 MG/10 MCG
     Route: 048
     Dates: start: 20101122

REACTIONS (1)
  - Hallucination [Recovered/Resolved]

NARRATIVE: CASE EVENT DATE: 20150325
